FAERS Safety Report 6173525-9 (Version None)
Quarter: 2009Q2

REPORT INFORMATION
  Report Type: 
  Country: None (occurrence: None)
  Receive Date: 20090430
  Receipt Date: 20090420
  Transmission Date: 20091009
  Serious: Yes (Other)
  Sender: FDA-Public Use
  Company Number: B0548869A

PATIENT
  Age: 40 Year
  Sex: Female

DRUGS (3)
  1. KIVEXA [Suspect]
     Indication: HIV INFECTION
     Route: 048
     Dates: start: 20080901, end: 20080901
  2. KALETRA [Concomitant]
     Indication: HIV INFECTION
     Route: 048
     Dates: start: 20080910
  3. SEPTRIN [Concomitant]
     Indication: HIV INFECTION
     Route: 048
     Dates: start: 20080901

REACTIONS (4)
  - DRUG HYPERSENSITIVITY [None]
  - LARYNGOSPASM [None]
  - RASH GENERALISED [None]
  - RESPIRATORY DISTRESS [None]
